FAERS Safety Report 13293764 (Version 5)
Quarter: 2017Q2

REPORT INFORMATION
  Report Type: Spontaneous
  Country: JP (occurrence: JP)
  Receive Date: 20170303
  Receipt Date: 20170606
  Transmission Date: 20170830
  Serious: Yes (Hospitalization)
  Sender: FDA-Public Use
  Company Number: JP-UCBSA-2017007810

PATIENT
  Age: 69 Year
  Sex: Female

DRUGS (3)
  1. LEVODOPA/CARBIDOPA [Concomitant]
     Active Substance: CARBIDOPA\LEVODOPA
     Dosage: DECREASED DOSE (LEVODOPA 100 MG/DAY AND CARBIDOPA 10 MG/DAY)
  2. NEUPRO [Suspect]
     Active Substance: ROTIGOTINE
     Indication: PARKINSON^S DISEASE
     Dosage: 4 MG, ONCE DAILY (QD)
     Route: 062
     Dates: start: 20160501, end: 201605
  3. LEVODOPA/CARBIDOPA [Concomitant]
     Active Substance: CARBIDOPA\LEVODOPA
     Indication: PARKINSON^S DISEASE
     Dosage: LEVODOPA 300 MG/DAY AND CARBIDOPA 30 MG/DAY

REACTIONS (2)
  - Drug dose titration not performed [Unknown]
  - Apraxia [Recovering/Resolving]

NARRATIVE: CASE EVENT DATE: 20160501
